FAERS Safety Report 23180893 (Version 1)
Quarter: 2023Q4

REPORT INFORMATION
  Report Type: Spontaneous
  Country: US (occurrence: US)
  Receive Date: 20231114
  Receipt Date: 20231114
  Transmission Date: 20240110
  Serious: No
  Sender: FDA-Public Use
  Company Number: US-MYLANLABS-2023M1119528

PATIENT
  Sex: Female
  Weight: 60 kg

DRUGS (2)
  1. ESTRADIOL [Suspect]
     Active Substance: ESTRADIOL
     Indication: Urinary tract infection
     Dosage: 1 GRAM, QW
     Route: 067
  2. NYSTATIN AND TRIAMCINOLONE ACETONIDE [Concomitant]
     Active Substance: NYSTATIN\TRIAMCINOLONE ACETONIDE
     Dosage: UNK
     Route: 065

REACTIONS (3)
  - Application site pruritus [Unknown]
  - Off label use [Unknown]
  - Therapeutic response unexpected [Unknown]
